FAERS Safety Report 4365797-8 (Version None)
Quarter: 2004Q2

REPORT INFORMATION
  Report Type: 
  Country: None (occurrence: None)
  Receive Date: 20040520
  Receipt Date: 20040514
  Transmission Date: 20050107
  Serious: Yes (Death)
  Sender: FDA-Public Use
  Company Number: 2004AP02736

PATIENT
  Age: 71 Year
  Sex: Male

DRUGS (17)
  1. IRESSA [Suspect]
     Indication: NON-SMALL CELL LUNG CANCER
     Dosage: 250 MG DAILY PO
     Route: 048
     Dates: start: 20031020, end: 20031020
  2. LOXONIN [Concomitant]
  3. BIOFERMIN [Concomitant]
  4. UFT [Concomitant]
  5. MYONAL [Concomitant]
  6. DEPAS [Concomitant]
  7. MAGNESIUM OXIDE [Concomitant]
  8. TAKEPRON [Concomitant]
  9. SILECE [Concomitant]
  10. PREDONINE [Concomitant]
  11. TEGRETOL [Concomitant]
  12. DUROTEP JANSSEN [Concomitant]
  13. AMINOFLUID [Concomitant]
  14. PRIMPERAN INJ [Concomitant]
  15. ROCEPHIN [Concomitant]
  16. CISPLATIN [Concomitant]
  17. RADIOTHERAPY [Concomitant]

REACTIONS (4)
  - GENERAL PHYSICAL HEALTH DETERIORATION [None]
  - MALIGNANT NEOPLASM PROGRESSION [None]
  - NON-SMALL CELL LUNG CANCER [None]
  - PNEUMONIA [None]
